FAERS Safety Report 24617454 (Version 3)
Quarter: 2025Q4

REPORT INFORMATION
  Report Type: Spontaneous
  Country: BR (occurrence: BR)
  Receive Date: 20241114
  Receipt Date: 20251017
  Transmission Date: 20260118
  Serious: Yes (Death, Life-Threatening, Hospitalization, Disabling, Other)
  Sender: BRISTOL-MYERS SQUIBB COMPANY
  Company Number: BR-BRISTOL-MYERS SQUIBB COMPANY-2024-176599

PATIENT
  Age: 69 Year
  Sex: Female
  Weight: 45 kg

DRUGS (2)
  1. OPDIVO [Suspect]
     Active Substance: NIVOLUMAB
     Indication: Adenocarcinoma gastric
     Dates: start: 20241024
  2. OPDIVO [Suspect]
     Active Substance: NIVOLUMAB
     Dates: start: 20241024

REACTIONS (2)
  - Cardiogenic shock [Fatal]
  - Myocarditis [Fatal]

NARRATIVE: CASE EVENT DATE: 20241107
